FAERS Safety Report 5557833-8 (Version None)
Quarter: 2007Q4

REPORT INFORMATION
  Report Type: 
  Country: None (occurrence: None)
  Receive Date: 20071130
  Receipt Date: 20070920
  Transmission Date: 20080405
  Serious: No
  Sender: FDA-Public Use
  Company Number: US200708006413

PATIENT
  Age: 61 Year
  Sex: Female

DRUGS (3)
  1. BYETTA [Suspect]
     Indication: OBESITY
     Dosage: 5 UG, 2/D, SUBCUTANEOUS;  10 UG, 2/D, SUBCUTANEOUS
     Route: 058
     Dates: start: 20070806, end: 20070825
  2. BYETTA [Suspect]
     Indication: OBESITY
     Dosage: 5 UG, 2/D, SUBCUTANEOUS;  10 UG, 2/D, SUBCUTANEOUS
     Route: 058
     Dates: start: 20070826
  3. GLUCOPHAGE [Concomitant]

REACTIONS (8)
  - BLOOD GLUCOSE INCREASED [None]
  - DECREASED APPETITE [None]
  - DIARRHOEA [None]
  - INJECTION SITE BRUISING [None]
  - LIMB INJURY [None]
  - LOCALISED INFECTION [None]
  - NAUSEA [None]
  - RETCHING [None]
